FAERS Safety Report 7906971-0 (Version None)
Quarter: 2011Q4

REPORT INFORMATION
  Report Type: 
  Country: None (occurrence: None)
  Receive Date: 20111110
  Receipt Date: 20111031
  Transmission Date: 20120403
  Serious: Yes (Other)
  Sender: FDA-Public Use
  Company Number: NL-PERRIGO-11NL009446

PATIENT
  Age: 12 Year
  Sex: Male

DRUGS (3)
  1. PREDNISOLONE SODIUM PHOSPHATE [Suspect]
     Indication: ACUTE LYMPHOCYTIC LEUKAEMIA
     Dosage: 60 MG/M2, QD
     Route: 065
  2. CHEMOTHERAPY [Concomitant]
     Indication: ACUTE LYMPHOCYTIC LEUKAEMIA
     Route: 065
  3. DEXAMETHASONE [Suspect]
     Indication: ACUTE LYMPHOCYTIC LEUKAEMIA
     Dosage: 6 MG/M2, QD
     Route: 048

REACTIONS (5)
  - DIZZINESS [None]
  - SYNCOPE [None]
  - CUSHINGOID [None]
  - ADRENAL INSUFFICIENCY [None]
  - MUSCULAR WEAKNESS [None]
